FAERS Safety Report 13952198 (Version 1)
Quarter: 2017Q3

REPORT INFORMATION
  Report Type: Spontaneous
  Country: US (occurrence: US)
  Receive Date: 20170911
  Receipt Date: 20170911
  Transmission Date: 20171128
  Serious: No
  Sender: FDA-Public Use
  Company Number: US-GLENMARK PHARMACEUTICALS-2017GMK026787

PATIENT

DRUGS (3)
  1. GABAPENTIN TABLETS [Suspect]
     Active Substance: GABAPENTIN
     Indication: PRURITUS
  2. GABAPENTIN TABLETS [Suspect]
     Active Substance: GABAPENTIN
     Indication: DERMATITIS HERPETIFORMIS
     Dosage: 800-1100 MG (DOSE IS DIVIDED INTO TWICE A DAY)
     Route: 048
  3. DAPSONE. [Concomitant]
     Active Substance: DAPSONE
     Indication: PRODUCT USED FOR UNKNOWN INDICATION
     Route: 065

REACTIONS (3)
  - Therapeutic response unexpected [Unknown]
  - No adverse event [Unknown]
  - Off label use [Unknown]
